FAERS Safety Report 9229996 (Version 2)
Quarter: 2013Q2

REPORT INFORMATION
  Report Type: Spontaneous
  Country: US (occurrence: US)
  Receive Date: 20130415
  Receipt Date: 20130510
  Transmission Date: 20140414
  Serious: Yes (Other)
  Sender: FDA-Public Use
  Company Number: US-JNJFOC-20130403287

PATIENT
  Age: 73 Year
  Sex: Female
  Weight: 52.16 kg

DRUGS (4)
  1. STELARA [Suspect]
     Indication: PSORIASIS
     Route: 058
     Dates: start: 201004, end: 201302
  2. PAXIL [Concomitant]
     Indication: ANXIETY
     Route: 065
  3. LIPITOR [Concomitant]
     Indication: BLOOD CHOLESTEROL INCREASED
     Route: 065
  4. EXFORGE [Concomitant]
     Route: 065

REACTIONS (1)
  - Latent tuberculosis [Recovering/Resolving]
